FAERS Safety Report 6494138-5 (Version None)
Quarter: 2009Q4

REPORT INFORMATION
  Report Type: 
  Country: None (occurrence: None)
  Receive Date: 20091214
  Receipt Date: 20090109
  Transmission Date: 20100525
  Serious: No
  Sender: FDA-Public Use
  Company Number: US-BRISTOL-MYERS SQUIBB COMPANY-14465363

PATIENT
  Age: 46 Year
  Sex: Female

DRUGS (2)
  1. ABILIFY [Suspect]
     Indication: PSYCHOTIC DISORDER
     Dosage: INCREASED TO 10MG BID AND THEN DECREASED BACK TO 10MG QD
  2. SEROQUEL [Concomitant]

REACTIONS (2)
  - IRRITABILITY [None]
  - SEDATION [None]
